FAERS Safety Report 21610709 (Version 2)
Quarter: 2022Q4

REPORT INFORMATION
  Report Type: Other
  Country: CN (occurrence: None)
  Receive Date: 20221117
  Receipt Date: 20221206
  Transmission Date: 20230112
  Serious: Yes (Hospitalization)
  Sender: FDA-Public Use
  Company Number: CN-ROCHE-2406606

PATIENT
  Age: 65 Year
  Sex: Female
  Weight: 66 kg

DRUGS (1)
  1. AVASTIN [Suspect]
     Active Substance: BEVACIZUMAB
     Indication: Lung adenocarcinoma
     Dosage: FORM OF ADMIN: 100 MG
     Route: 041
     Dates: start: 20170506, end: 20221025

REACTIONS (5)
  - Nasopharyngitis [Unknown]
  - Pyrexia [Unknown]
  - Discomfort [Unknown]
  - Blood glucose increased [Unknown]
  - Albumin urine present [Unknown]

NARRATIVE: CASE EVENT DATE: 20190908
